FAERS Safety Report 21340412 (Version 1)
Quarter: 2022Q3

REPORT INFORMATION
  Report Type: Spontaneous
  Country: US (occurrence: None)
  Receive Date: 20220915
  Receipt Date: 20220915
  Transmission Date: 20221027
  Serious: Yes (Hospitalization)
  Sender: FDA-Public Use
  Company Number: None

PATIENT
  Sex: Female

DRUGS (7)
  1. XOLAIR [Suspect]
     Active Substance: OMALIZUMAB
     Indication: Asthma
     Dosage: OTHER FREQUENCY : EVERY 28 DAYS;?INJECT 1 SYRINGE UNDER THE SKIN (SUBCUTANEOUS INJECTION) EVERY 28 D
     Route: 058
     Dates: start: 20210126
  2. ALBUTEROL [Concomitant]
     Active Substance: ALBUTEROL
  3. BUDESONIDE POW [Concomitant]
  4. FLONASE ALGY SPR [Concomitant]
  5. METHYLPHENID TAB ER [Concomitant]
  6. SINGULAIR CHW [Concomitant]
  7. SYMBICORT AER [Concomitant]

REACTIONS (3)
  - Condition aggravated [None]
  - Impaired quality of life [None]
  - Viral infection [None]
